FAERS Safety Report 14491815 (Version 1)
Quarter: 2018Q1

REPORT INFORMATION
  Report Type: Spontaneous
  Country: US (occurrence: US)
  Receive Date: 20180205
  Receipt Date: 20180205
  Transmission Date: 20180509
  Serious: Yes (Death)
  Sender: FDA-Public Use
  Company Number: None

PATIENT
  Age: 61 Year
  Sex: Female
  Weight: 42 kg

DRUGS (17)
  1. LACTULOSE. [Concomitant]
     Active Substance: LACTULOSE
  2. DENOSUMAB [Concomitant]
     Active Substance: DENOSUMAB
  3. MAGNESIUM CITRATE. [Concomitant]
     Active Substance: MAGNESIUM CITRATE
  4. MIRALAX [Concomitant]
     Active Substance: POLYETHYLENE GLYCOL 3350
  5. PONATINIB 15 MG [Suspect]
     Active Substance: PONATINIB
  6. DEXAMETHASONE. [Concomitant]
     Active Substance: DEXAMETHASONE
  7. CALCIUM CARBONATE-VITAMIN D [Concomitant]
     Active Substance: CALCIUM CARBONATE\VITAMIN D
  8. ARTIFICIAL TEAR [Concomitant]
     Active Substance: LANOLIN\MINERAL OIL\PETROLATUM
  9. ONDANSETRON [Concomitant]
     Active Substance: ONDANSETRON
  10. NORTRYPTYLINE, 25 MG [Concomitant]
     Active Substance: NORTRIPTYLINE
  11. PROCHLORPERAZINE. [Concomitant]
     Active Substance: PROCHLORPERAZINE
  12. NAPROXEN. [Concomitant]
     Active Substance: NAPROXEN
  13. SENNA [Concomitant]
     Active Substance: SENNA LEAF\SENNOSIDES\SENNOSIDES A AND B
  14. LUBIPROSTONE [Concomitant]
     Active Substance: LUBIPROSTONE
     Route: 048
     Dates: start: 20170711, end: 20171229
  15. ASPIRIN. [Concomitant]
     Active Substance: ASPIRIN
  16. VITAMIN E [Concomitant]
     Active Substance: .ALPHA.-TOCOPHEROL
  17. DOCUSATE [Concomitant]
     Active Substance: DOCUSATE

REACTIONS (6)
  - Polyp [None]
  - Disease progression [None]
  - Neoplasm progression [None]
  - Malignant neoplasm progression [None]
  - Cyst [None]
  - Non-small cell lung cancer [None]

NARRATIVE: CASE EVENT DATE: 20180124
